FAERS Safety Report 23666400 (Version 3)
Quarter: 2024Q3

REPORT INFORMATION
  Report Type: Spontaneous
  Country: US (occurrence: None)
  Receive Date: 20240324
  Receipt Date: 20240725
  Transmission Date: 20241017
  Serious: No
  Sender: ASTRAZENECA
  Company Number: 2024A064939

PATIENT
  Sex: Male

DRUGS (2)
  1. BYDUREON BCISE [Suspect]
     Active Substance: EXENATIDE
     Dosage: 2.0MG UNKNOWN
  2. BYETTA [Suspect]
     Active Substance: EXENATIDE

REACTIONS (2)
  - Hypoacusis [Unknown]
  - Product physical issue [Unknown]
